FAERS Safety Report 15958334 (Version 1)
Quarter: 2019Q1

REPORT INFORMATION
  Report Type: Spontaneous
  Country: KR (occurrence: KR)
  Receive Date: 20190213
  Receipt Date: 20190213
  Transmission Date: 20190417
  Serious: Yes (Other)
  Sender: FDA-Public Use
  Company Number: KR-009507513-1902KOR003847

PATIENT
  Sex: Male

DRUGS (1)
  1. PROPECIA [Suspect]
     Active Substance: FINASTERIDE
     Dosage: UNK
     Route: 048
     Dates: start: 201808

REACTIONS (4)
  - Urinary retention [Not Recovered/Not Resolved]
  - Urinary sediment [Unknown]
  - Testicular pain [Unknown]
  - Micturition urgency [Recovering/Resolving]

NARRATIVE: CASE EVENT DATE: 201808
